FAERS Safety Report 6315050-8 (Version None)
Quarter: 2009Q3

REPORT INFORMATION
  Report Type: 
  Country: None (occurrence: None)
  Receive Date: 20090818
  Receipt Date: 20090818
  Transmission Date: 20100115
  Serious: Yes (Other)
  Sender: FDA-Public Use
  Company Number: None

PATIENT
  Age: 45 Year
  Sex: Female
  Weight: 47.1741 kg

DRUGS (1)
  1. ONDANSETRON ODT 4MG [Suspect]
     Indication: NAUSEA
     Dosage: 4MG BID PO
     Route: 048
     Dates: start: 20071115, end: 20071220

REACTIONS (3)
  - MIGRAINE [None]
  - NAUSEA [None]
  - PRODUCT SUBSTITUTION ISSUE [None]
